FAERS Safety Report 6805735-9 (Version None)
Quarter: 2010Q2

REPORT INFORMATION
  Report Type: 
  Country: None (occurrence: None)
  Receive Date: 20100628
  Receipt Date: 20080505
  Transmission Date: 20101027
  Serious: Yes (Hospitalization, Other)
  Sender: FDA-Public Use
  Company Number: US-PFIZER INC-2008039550

PATIENT
  Sex: Male

DRUGS (2)
  1. SUTENT [Suspect]
  2. DURAGESIC-100 [Concomitant]

REACTIONS (3)
  - LIVER FUNCTION TEST ABNORMAL [None]
  - METASTATIC RENAL CELL CARCINOMA [None]
  - PANCREATITIS ACUTE [None]
